FAERS Safety Report 6216887-6 (Version None)
Quarter: 2009Q2

REPORT INFORMATION
  Report Type: 
  Country: None (occurrence: None)
  Receive Date: 20090605
  Receipt Date: 20090528
  Transmission Date: 20091009
  Serious: Yes (Other)
  Sender: FDA-Public Use
  Company Number: US-AMGEN-QUU348974

PATIENT
  Sex: Female

DRUGS (2)
  1. ENBREL [Suspect]
     Indication: RHEUMATOID ARTHRITIS
     Route: 058
     Dates: start: 20010901
  2. ARAVA [Concomitant]

REACTIONS (4)
  - HISTOPLASMOSIS [None]
  - RHEUMATOID ARTHRITIS [None]
  - SYNOVIAL CYST [None]
  - WEIGHT INCREASED [None]
